FAERS Safety Report 4517743-1 (Version None)
Quarter: 2004Q4

REPORT INFORMATION
  Report Type: 
  Country: None (occurrence: None)
  Receive Date: 20041201
  Receipt Date: 20041201
  Transmission Date: 20050328
  Serious: Yes (Other)
  Sender: FDA-Public Use
  Company Number: None

PATIENT
  Age: 56 Year
  Sex: Male
  Weight: 51 kg

DRUGS (1)
  1. ANGIOMAX [Suspect]
     Dosage: BOLUS 7.5 ML DRIP  Q 14CC/HR
     Route: 040

REACTIONS (1)
  - NO ADVERSE DRUG EFFECT [None]
